FAERS Safety Report 6004217-4 (Version None)
Quarter: 2008Q4

REPORT INFORMATION
  Report Type: 
  Country: None (occurrence: None)
  Receive Date: 20081216
  Receipt Date: 20081208
  Transmission Date: 20090506
  Serious: Yes (Hospitalization)
  Sender: FDA-Public Use
  Company Number: US-BIOGENIDEC-2008BI024509

PATIENT
  Sex: Male

DRUGS (2)
  1. AVONEX [Suspect]
     Indication: MULTIPLE SCLEROSIS
     Route: 030
  2. CORTICOSTEROIDS [Concomitant]
     Indication: MULTIPLE SCLEROSIS

REACTIONS (3)
  - BIPOLAR DISORDER [None]
  - DEPRESSION SUICIDAL [None]
  - SUBSTANCE ABUSE [None]
